FAERS Safety Report 7250257-7 (Version None)
Quarter: 2011Q1

REPORT INFORMATION
  Report Type: 
  Country: None (occurrence: None)
  Receive Date: 20110128
  Receipt Date: 20110121
  Transmission Date: 20110831
  Serious: Yes (Death, Hospitalization)
  Sender: FDA-Public Use
  Company Number: BR-SANOFI-AVENTIS-2011SA004206

PATIENT
  Sex: Female
  Weight: 50 kg

DRUGS (2)
  1. INSULIN PEN NOS [Suspect]
  2. LANTUS [Suspect]
     Route: 058
     Dates: start: 20080601

REACTIONS (3)
  - CONSTIPATION [None]
  - URINE ODOUR ABNORMAL [None]
  - MULTI-ORGAN FAILURE [None]
